FAERS Safety Report 13960782 (Version 1)
Quarter: 2017Q3

REPORT INFORMATION
  Report Type: Spontaneous
  Country: US (occurrence: US)
  Receive Date: 20170912
  Receipt Date: 20170912
  Transmission Date: 20171128
  Serious: Yes (Other)
  Sender: FDA-Public Use
  Company Number: US-AMGEN-USASP2017135876

PATIENT
  Age: 73 Year
  Sex: Female

DRUGS (1)
  1. PROLIA [Suspect]
     Active Substance: DENOSUMAB
     Indication: OSTEOPOROSIS POSTMENOPAUSAL
     Dosage: UNK, UNK
     Route: 065
     Dates: start: 2015

REACTIONS (5)
  - Ligament sprain [Unknown]
  - Foot fracture [Recovered/Resolved]
  - Fall [Unknown]
  - Contusion [Unknown]
  - Rib fracture [Unknown]

NARRATIVE: CASE EVENT DATE: 2016
